FAERS Safety Report 20518440 (Version 1)
Quarter: 2022Q1

REPORT INFORMATION
  Report Type: Spontaneous
  Country: KR (occurrence: KR)
  Receive Date: 20220225
  Receipt Date: 20220225
  Transmission Date: 20220423
  Serious: Yes (Other)
  Sender: FDA-Public Use
  Company Number: KR-009507513-2202KOR007854

PATIENT
  Age: 24 Year
  Sex: Female
  Weight: 51 kg

DRUGS (1)
  1. PREVYMIS [Suspect]
     Active Substance: LETERMOVIR
     Dosage: UNK, QD (TABLET 240 MG)
     Route: 048
     Dates: start: 20210303, end: 20210519

REACTIONS (2)
  - Anal abscess [Unknown]
  - Anal fistula [Unknown]

NARRATIVE: CASE EVENT DATE: 20211101
